FAERS Safety Report 12539240 (Version 2)
Quarter: 2016Q3

REPORT INFORMATION
  Report Type: Spontaneous
  Country: JP (occurrence: JP)
  Receive Date: 20160708
  Receipt Date: 20160725
  Transmission Date: 20161109
  Serious: Yes (Other)
  Sender: FDA-Public Use
  Company Number: JP-ROCHE-1789530

PATIENT
  Age: 87 Year
  Sex: Female

DRUGS (7)
  1. LUCENTIS [Suspect]
     Active Substance: RANIBIZUMAB
     Dosage: UNK, IN THE LEFT EYE
     Route: 050
     Dates: start: 20120216
  2. LUCENTIS [Suspect]
     Active Substance: RANIBIZUMAB
     Dosage: UNK, IN THE LEFT EYE
     Route: 050
     Dates: start: 20100628
  3. LUCENTIS [Suspect]
     Active Substance: RANIBIZUMAB
     Indication: AGE-RELATED MACULAR DEGENERATION
     Dosage: IN THE LEFT EYE
     Route: 050
     Dates: start: 20090629
  4. LUCENTIS [Suspect]
     Active Substance: RANIBIZUMAB
     Dosage: UNK, IN THE LEFT EYE
     Route: 050
     Dates: start: 20100205
  5. LUCENTIS [Suspect]
     Active Substance: RANIBIZUMAB
     Dosage: UNK, IN THE LEFT EYE
     Route: 050
     Dates: start: 20090807
  6. LUCENTIS [Suspect]
     Active Substance: RANIBIZUMAB
     Dosage: UNK, IN THE LEFT EYE
     Route: 050
     Dates: start: 20090911
  7. LUCENTIS [Suspect]
     Active Substance: RANIBIZUMAB
     Dosage: UNK, IN THE LEFT EYE
     Route: 050
     Dates: start: 20091120

REACTIONS (10)
  - Cataract [Unknown]
  - Macular pigmentation [Unknown]
  - Macular oedema [Unknown]
  - Retinal haemorrhage [Unknown]
  - Macular cyst [Unknown]
  - Macular fibrosis [Unknown]
  - Vision blurred [Unknown]
  - Macular degeneration [Unknown]
  - Eye haemorrhage [Unknown]
  - Therapy non-responder [Unknown]

NARRATIVE: CASE EVENT DATE: 20121222
